FAERS Safety Report 25832134 (Version 1)
Quarter: 2025Q3

REPORT INFORMATION
  Report Type: Spontaneous
  Country: US (occurrence: US)
  Receive Date: 20250922
  Receipt Date: 20250922
  Transmission Date: 20251021
  Serious: Yes (Hospitalization)
  Sender: PFIZER
  Company Number: US-PFIZER INC-202500186317

PATIENT
  Age: 53 Year
  Sex: Female

DRUGS (13)
  1. XELJANZ XR [Suspect]
     Active Substance: TOFACITINIB CITRATE
     Dosage: 22 MG, 1X/DAY
     Dates: start: 202504
  2. CELEBREX [Concomitant]
     Active Substance: CELECOXIB
  3. BUDESONIDE [Concomitant]
     Active Substance: BUDESONIDE
  4. SPIRONOLACTONE [Concomitant]
     Active Substance: SPIRONOLACTONE
  5. LEVOTHYROXINE SODIUM [Concomitant]
     Active Substance: LEVOTHYROXINE SODIUM
  6. CLOTRIMAZOLE [Concomitant]
     Active Substance: CLOTRIMAZOLE
  7. AMBIEN [Concomitant]
     Active Substance: ZOLPIDEM TARTRATE
  8. FLUCONAZOLE [Concomitant]
     Active Substance: FLUCONAZOLE
  9. ONDANSETRON [Concomitant]
     Active Substance: ONDANSETRON
  10. VITAMIN D NOS [Concomitant]
     Active Substance: CHOLECALCIFEROL\ERGOCALCIFEROL
  11. BROMFENAC/PREDNISOLONE [Concomitant]
  12. METHOCARBAMOL [Concomitant]
     Active Substance: METHOCARBAMOL
  13. VOQUEZNA [Concomitant]
     Active Substance: VONOPRAZAN FUMARATE

REACTIONS (2)
  - Oropharyngeal candidiasis [Not Recovered/Not Resolved]
  - Oral surgery [Not Recovered/Not Resolved]
